FAERS Safety Report 17986999 (Version 1)
Quarter: 2020Q3

REPORT INFORMATION
  Report Type: Other
  Country: FR (occurrence: FR)
  Receive Date: 20200707
  Receipt Date: 20200707
  Transmission Date: 20201103
  Serious: Yes (Other)
  Sender: FDA-Public Use
  Company Number: FR-CELLTRION INC.-2020FR023908

PATIENT

DRUGS (1)
  1. TRUXIMA [Suspect]
     Active Substance: RITUXIMAB-ABBS
     Indication: NEPHROTIC SYNDROME
     Dosage: 1 DF
     Route: 042
     Dates: start: 20200616, end: 20200616

REACTIONS (4)
  - Laryngeal discomfort [Recovered/Resolved]
  - Off label use [Unknown]
  - Oxygen saturation decreased [Recovered/Resolved]
  - Product use issue [Unknown]

NARRATIVE: CASE EVENT DATE: 20200616
